FAERS Safety Report 8587713 (Version 2)
Quarter: 2012Q4

REPORT INFORMATION
  Report Type: 
  Country: US (occurrence: US)
  Receive Date: 20120531
  Receipt Date: 20120925
  Transmission Date: 20130627
  Serious: Yes (Other)
  Sender: FDA-Public Use
  Company Number: US-ASTRAZENECA-2012SE33483

PATIENT
  Age: 23841 Day
  Sex: Female

DRUGS (11)
  1. NEXIUM [Suspect]
     Indication: GASTROOESOPHAGEAL REFLUX DISEASE
     Route: 048
     Dates: start: 2005, end: 2010
  2. NEXIUM [Suspect]
     Indication: GASTROOESOPHAGEAL REFLUX DISEASE
     Route: 048
     Dates: start: 20050913
  3. HYDROCHLOROT [Concomitant]
     Dates: start: 20040830
  4. LISINOPRIL [Concomitant]
     Dates: start: 20040830
  5. AVANDAMET [Concomitant]
     Dosage: 4 TO 500 MG
     Dates: start: 20040909
  6. AVANDAMET [Concomitant]
     Dosage: 4 TO 1000 MG
     Dates: start: 20041012
  7. ALPRAZOLAM [Concomitant]
     Dates: start: 20040916
  8. HYDROCO/APAP [Concomitant]
     Dosage: 5
     Dates: start: 20041012
  9. SULINDAC [Concomitant]
     Dates: start: 20041012
  10. ZOCOR [Concomitant]
     Dates: start: 20041119
  11. FEXOFENADINE [Concomitant]
     Dosage: 180M
     Dates: start: 20060110

REACTIONS (1)
  - Hip fracture [Unknown]
